FAERS Safety Report 4906352-8 (Version None)
Quarter: 2006Q1

REPORT INFORMATION
  Report Type: 
  Country: None (occurrence: None)
  Receive Date: 20060209
  Receipt Date: 20060130
  Transmission Date: 20060701
  Serious: Yes (Hospitalization)
  Sender: FDA-Public Use
  Company Number: US-JNJFOC-20060200582

PATIENT
  Sex: Female

DRUGS (24)
  1. RISPERDAL [Suspect]
  2. RISPERDAL [Suspect]
     Indication: BIPOLAR DISORDER
  3. CAMPRAL [Suspect]
     Indication: ALCOHOLISM
     Route: 048
  4. CELEXA [Suspect]
     Route: 048
  5. CELEXA [Suspect]
     Route: 048
  6. CELEXA [Suspect]
     Route: 048
  7. CELEXA [Suspect]
     Indication: BIPOLAR DISORDER
     Route: 048
  8. WELLBUTRIN SR [Suspect]
     Route: 048
  9. WELLBUTRIN SR [Suspect]
     Indication: BIPOLAR DISORDER
     Route: 048
  10. NEURONTIN [Concomitant]
  11. DEPAKOTE [Concomitant]
  12. GLYBURIDE [Concomitant]
  13. LACTULOSE [Concomitant]
  14. CORGARD [Concomitant]
  15. SYNTHROID [Concomitant]
  16. CALTRATE [Concomitant]
  17. MULTI-VITAMIN [Concomitant]
  18. MULTI-VITAMIN [Concomitant]
  19. MULTI-VITAMIN [Concomitant]
  20. MULTI-VITAMIN [Concomitant]
  21. MULTI-VITAMIN [Concomitant]
  22. MULTI-VITAMIN [Concomitant]
  23. MULTI-VITAMIN [Concomitant]
  24. MULTI-VITAMIN [Concomitant]

REACTIONS (3)
  - ANORGASMIA [None]
  - ANTICONVULSANT DRUG LEVEL DECREASED [None]
  - ENCEPHALOPATHY [None]
